FAERS Safety Report 18435030 (Version 2)
Quarter: 2022Q3

REPORT INFORMATION
  Report Type: Report from Study
  Country: US (occurrence: US)
  Receive Date: 20201027
  Receipt Date: 20220907
  Transmission Date: 20221027
  Serious: Yes (Other)
  Sender: FDA-Public Use
  Company Number: US-JAZZ-2020-US-007828

PATIENT
  Sex: Female

DRUGS (15)
  1. XYREM [Suspect]
     Active Substance: SODIUM OXYBATE
     Indication: Narcolepsy
     Dosage: 2.25 GRAM, BID
     Route: 048
     Dates: start: 202002, end: 202002
  2. XYREM [Suspect]
     Active Substance: SODIUM OXYBATE
     Indication: Cataplexy
     Dosage: DOSE ADJUSTMENT
     Route: 048
     Dates: start: 202002, end: 202005
  3. XYREM [Suspect]
     Active Substance: SODIUM OXYBATE
     Indication: Somnolence
     Dosage: 3.5 GRAM FIRST DOSE
     Route: 048
     Dates: start: 202005, end: 20200614
  4. XYREM [Suspect]
     Active Substance: SODIUM OXYBATE
     Dosage: 3 GRAM SECOND DOSE
     Route: 048
     Dates: start: 202005, end: 20200614
  5. XYREM [Suspect]
     Active Substance: SODIUM OXYBATE
     Dosage: 2.25 GRAM, FIRST DOSE
     Route: 048
     Dates: start: 2020, end: 202009
  6. XYREM [Suspect]
     Active Substance: SODIUM OXYBATE
     Dosage: 1 GRAM (SECOND AND THIRD DOSE)
     Route: 048
     Dates: start: 2020, end: 202009
  7. XYREM [Suspect]
     Active Substance: SODIUM OXYBATE
     Dosage: 4.75 GRAM TOTAL NIGHTLY
     Route: 048
     Dates: start: 2020, end: 2020
  8. XYREM [Suspect]
     Active Substance: SODIUM OXYBATE
     Dosage: 2.5 GRAM (FIRST DOSE)
     Route: 048
     Dates: start: 2020, end: 2020
  9. XYREM [Suspect]
     Active Substance: SODIUM OXYBATE
     Dosage: 1.25 GRAM (SECOND DOSE)
     Route: 048
     Dates: start: 2020, end: 2020
  10. XYREM [Suspect]
     Active Substance: SODIUM OXYBATE
     Dosage: 1 GRAM (THIRD DOSE)
     Route: 048
     Dates: start: 2020, end: 2020
  11. XYREM [Suspect]
     Active Substance: SODIUM OXYBATE
     Dosage: 2.5 GRAM, FIRST DOSE
     Route: 048
     Dates: start: 2020
  12. XYREM [Suspect]
     Active Substance: SODIUM OXYBATE
     Dosage: 2.25 GRAM, SECOND DOSE
     Route: 048
     Dates: start: 2020
  13. MODAFINIL [Suspect]
     Active Substance: MODAFINIL
     Indication: Product used for unknown indication
  14. FERROUS SULFATE [Concomitant]
     Active Substance: FERROUS SULFATE
     Indication: Product used for unknown indication
     Dosage: 325 MILLIGRAM, QD
  15. VITAMIN D2 [Concomitant]
     Active Substance: ERGOCALCIFEROL
     Indication: Product used for unknown indication

REACTIONS (6)
  - Essential hypertension [Unknown]
  - Transient ischaemic attack [Unknown]
  - Hyperacusis [Not Recovered/Not Resolved]
  - Hyperaesthesia [Not Recovered/Not Resolved]
  - Visual impairment [Not Recovered/Not Resolved]
  - Head discomfort [Not Recovered/Not Resolved]
